FAERS Safety Report 7348997-4 (Version None)
Quarter: 2011Q1

REPORT INFORMATION
  Report Type: 
  Country: None (occurrence: None)
  Receive Date: 20110314
  Receipt Date: 20110228
  Transmission Date: 20110831
  Serious: Yes (Other)
  Sender: FDA-Public Use
  Company Number: BR-ELI_LILLY_AND_COMPANY-BR201103000277

PATIENT
  Sex: Male

DRUGS (1)
  1. HUMAN INSULIN (RDNA ORIGIN) 50REG50NPH [Suspect]
     Dosage: UNK, UNKNOWN
     Route: 065

REACTIONS (2)
  - HAEMORRHAGE [None]
  - SYNCOPE [None]
